FAERS Safety Report 10331792 (Version 3)
Quarter: 2015Q1

REPORT INFORMATION
  Report Type: Spontaneous
  Country: US (occurrence: US)
  Receive Date: 20140722
  Receipt Date: 20150213
  Transmission Date: 20150720
  Serious: Yes (Hospitalization)
  Sender: FDA-Public Use
  Company Number: US-BAYER-2014-107679

PATIENT
  Age: 30 Year
  Sex: Female
  Weight: 65.76 kg

DRUGS (3)
  1. PRENATAL PLUS IRON [Concomitant]
     Active Substance: .ALPHA.-TOCOPHEROL ACETATE, DL-\.BETA.-CAROTENE\ASCORBIC ACID\CALCIUM CARBONATE\CHOLECALCIFEROL\CUPRIC OXIDE\CYANOCOBALAMIN\FERROUS FUMARATE\FOLIC ACID\NIACINAMIDE\PYRIDOXINE HYDROCHLORIDE\RIBOFLAVIN\THIAMINE MONONITRATE\VITAMIN A ACETATE\ZINC OXIDE
  2. MIRENA [Suspect]
     Active Substance: LEVONORGESTREL
     Indication: CONTRACEPTION
     Dosage: 20 MCG/24HR, CONT
     Route: 015
     Dates: start: 20120404, end: 20120614
  3. CALCIUM PLUS [CALCIUM,COLECALCIFEROL] [Concomitant]
     Dosage: 1200 MG, UNK

REACTIONS (6)
  - Device dislocation [None]
  - Device issue [None]
  - Uterine perforation [None]
  - Injury [None]
  - Off label use [None]
  - Pain [None]

NARRATIVE: CASE EVENT DATE: 201206
